FAERS Safety Report 20777493 (Version 3)
Quarter: 2022Q2

REPORT INFORMATION
  Report Type: Spontaneous
  Country: US (occurrence: None)
  Receive Date: 20220503
  Receipt Date: 20220615
  Transmission Date: 20220720
  Serious: Yes (Death, Other)
  Sender: FDA-Public Use
  Company Number: 2022A167619

PATIENT
  Age: 792 Month
  Sex: Male
  Weight: 90.7 kg

DRUGS (23)
  1. TEZSPIRE [Suspect]
     Active Substance: TEZEPELUMAB-EKKO
     Indication: Asthma
     Dosage: 210 MG / 1.91 ML, DOSE ONE
     Route: 065
     Dates: start: 20220113
  2. TEZSPIRE [Suspect]
     Active Substance: TEZEPELUMAB-EKKO
     Indication: Asthma
     Dosage: 210 MG / 1.91 ML, DOSE 2
     Route: 065
     Dates: start: 20220215
  3. TEZSPIRE [Suspect]
     Active Substance: TEZEPELUMAB-EKKO
     Indication: Asthma
     Dosage: 210 MG / 1.91 ML, DOSE 3
     Route: 065
     Dates: start: 20220318, end: 20220406
  4. TADALAFIL [Concomitant]
     Active Substance: TADALAFIL
     Indication: Arterial catheterisation
     Route: 048
     Dates: start: 20220318, end: 20220328
  5. METHOTREXATE SODIUM [Concomitant]
     Active Substance: METHOTREXATE SODIUM
     Indication: Sarcoidosis
     Dosage: 10-15 MG A WEEK SINCE 2010
     Dates: start: 20100101, end: 20220329
  6. ACTHAR [Concomitant]
     Active Substance: CORTICOTROPIN
     Dosage: 80 TU, SUB CUT. EVERY OTHER DAY.
     Route: 065
  7. CLINDAMYCIN HYDROCHLORIDE [Concomitant]
     Active Substance: CLINDAMYCIN HYDROCHLORIDE
     Dosage: 300 MG (1 EVERY 6 HOURS X2 DOSES)
     Route: 065
     Dates: start: 20220327
  8. AZITHROMYCIN [Concomitant]
     Active Substance: AZITHROMYCIN
     Dosage: 500 MG (2 TABLET ON MARCH 27, 2022(
     Route: 065
     Dates: start: 20220327
  9. ALPRAZOLAM [Concomitant]
     Active Substance: ALPRAZOLAM
     Indication: Anxiety
     Dosage: 0.5 MG (1 TABLET EVERY 12 HOURS)
     Route: 065
     Dates: start: 20220318
  10. TORSEMIDE [Concomitant]
     Active Substance: TORSEMIDE
     Route: 065
     Dates: start: 2020
  11. TRELEGY ELLIPTA [Concomitant]
     Active Substance: FLUTICASONE FUROATE\UMECLIDINIUM BROMIDE\VILANTEROL TRIFENATATE
     Dosage: 100 MCG (62.5 MCG - 25 MCG POWDER FOR INHALATION, 1 PUFF ONCE DAILY)
     Route: 065
  12. SPIRONOLACTONE [Concomitant]
     Active Substance: SPIRONOLACTONE
     Route: 065
  13. POTASSIUM CHLORIDE [Concomitant]
     Active Substance: POTASSIUM CHLORIDE
     Dosage: ER, 20 MEQ TABLET ONCE DAILY
     Route: 065
  14. JARDIANCE [Concomitant]
     Active Substance: EMPAGLIFLOZIN
     Route: 065
     Dates: start: 20220222
  15. CEFDINIR [Concomitant]
     Active Substance: CEFDINIR
     Route: 065
     Dates: start: 20220212
  16. METFORMIN [Concomitant]
     Active Substance: METFORMIN HYDROCHLORIDE
     Dosage: 2 TABS ONCE DAILY IN THE MORNING AND 1 TAB ONCE DAILY IN EVENING
     Route: 065
     Dates: start: 2022
  17. METOLAZONE [Concomitant]
     Active Substance: METOLAZONE
     Dosage: 1 TABLET BY MOUTH 3 TIMES A WEEK
     Route: 048
  18. JANUVIA [Concomitant]
     Active Substance: SITAGLIPTIN PHOSPHATE
     Route: 065
  19. ALBUTEROL SULFATE [Concomitant]
     Active Substance: ALBUTEROL SULFATE
     Dosage: 90 MCG/ACTUATION AEROSOL INHALER
     Dates: start: 2021
  20. MONTELUKAST [Concomitant]
     Active Substance: MONTELUKAST SODIUM
     Route: 065
  21. VITAMIN C [Concomitant]
     Active Substance: ASCORBIC ACID
     Route: 065
  22. DUPIXENT [Concomitant]
     Active Substance: DUPILUMAB
     Route: 058
  23. METHYLPREDNISOLONE [Concomitant]
     Active Substance: METHYLPREDNISOLONE
     Dosage: 60 MG IV Q6 HOURS.
     Route: 065

REACTIONS (8)
  - Cardiac arrest [Fatal]
  - Pancytopenia [Unknown]
  - Pulmonary hypertension [Unknown]
  - Gingival pain [Unknown]
  - Glossodynia [Unknown]
  - Throat irritation [Unknown]
  - Influenza [Unknown]
  - Oropharyngeal pain [Not Recovered/Not Resolved]

NARRATIVE: CASE EVENT DATE: 20220301
